FAERS Safety Report 9370508 (Version 2)
Quarter: 2013Q3

REPORT INFORMATION
  Report Type: Spontaneous
  Country: BR (occurrence: BR)
  Receive Date: 20130626
  Receipt Date: 20130912
  Transmission Date: 20140515
  Serious: Yes (Other)
  Sender: FDA-Public Use
  Company Number: BR-GLAXOSMITHKLINE-A1028595A

PATIENT
  Age: 9 Year
  Sex: Male
  Weight: 30 kg

DRUGS (6)
  1. ZINNAT [Suspect]
     Indication: BRONCHITIS
     Dosage: 250MG TWICE PER DAY
     Route: 048
     Dates: start: 20130613
  2. AVAMYS [Suspect]
     Indication: PRODUCT USED FOR UNKNOWN INDICATION
     Route: 045
     Dates: start: 20130613
  3. CELESTAMINE [Suspect]
     Indication: PRODUCT USED FOR UNKNOWN INDICATION
     Dosage: 5ML FOUR TIMES PER DAY
     Route: 065
     Dates: start: 20130613, end: 20130615
  4. HEDERA HELIX [Suspect]
     Indication: PRODUCT USED FOR UNKNOWN INDICATION
     Dosage: 5ML TWICE PER DAY
     Route: 065
     Dates: start: 20130613, end: 20130615
  5. ZINNAT [Suspect]
     Indication: BRONCHITIS
     Dosage: 250MG TWICE PER DAY
     Route: 048
  6. B COMPLEX [Concomitant]
     Indication: PRODUCT USED FOR UNKNOWN INDICATION
     Dosage: 2.5ML TWICE PER DAY
     Route: 065
     Dates: start: 20130513, end: 20130615

REACTIONS (4)
  - Hypothermia [Recovered/Resolved]
  - Vomiting [Recovered/Resolved]
  - Viral infection [Unknown]
  - Weight decreased [Recovered/Resolved]
